FAERS Safety Report 8830660 (Version 1)
Quarter: 2012Q4

REPORT INFORMATION
  Report Type: Report from Study
  Country: JP (occurrence: JP)
  Receive Date: 20121009
  Receipt Date: 20121009
  Transmission Date: 20130627
  Serious: Yes (Hospitalization)
  Sender: FDA-Public Use
  Company Number: JP-VERTEX PHARMACEUTICAL INC.-AE-2012-006989

PATIENT

DRUGS (18)
  1. VX-950 [Suspect]
     Indication: HEPATITIS C
     Dosage: UNK
     Route: 048
     Dates: start: 20120313, end: 20120511
  2. RIBAVIRIN [Suspect]
     Indication: HEPATITIS C
     Dosage: 600 mg, qd
     Route: 048
     Dates: start: 20120313, end: 20120511
  3. Z-PEGYLATED INTERFERON-2B [Suspect]
     Indication: HEPATITIS C
     Dosage: 100 ?g, 1x/week
     Route: 058
     Dates: start: 20120313, end: 20120511
  4. VOLTAREN [Suspect]
     Route: 054
  5. LOXONIN [Concomitant]
     Route: 048
     Dates: start: 20120330, end: 20120510
  6. DERMOVATE [Concomitant]
     Dosage: Adequate dose, qd
     Route: 062
     Dates: start: 20120319
  7. TATHION [Concomitant]
     Dosage: 300 mg, qd
     Route: 048
     Dates: start: 20120319
  8. ALLELOCK [Concomitant]
     Dosage: 10 mg, qd
     Route: 048
     Dates: start: 20120319
  9. ALESION [Concomitant]
     Dosage: 20 mg, qd
     Route: 048
     Dates: start: 20120319
  10. NEXIUM                             /01479302/ [Concomitant]
     Dosage: 20 mg, qd
     Route: 048
     Dates: start: 20120330
  11. XYZAL [Concomitant]
     Dosage: 5 mg, prn
     Route: 048
     Dates: start: 20120502, end: 20120510
  12. DIOVAN [Concomitant]
     Dosage: 80 mg, qd
     Route: 048
  13. REBAMIPIDE [Concomitant]
     Dosage: 300 mg, qd
     Route: 048
  14. ADETPHOS [Concomitant]
     Dosage: 2.7 g, qd
     Route: 048
  15. MECOBALAMIN [Concomitant]
     Dosage: 1500 ?g, qd
     Route: 048
  16. ISOBIDE                            /00586301/ [Concomitant]
     Dosage: 90 ml, qd
     Route: 048
  17. MERISLON [Concomitant]
     Dosage: 18 mg, qd
     Route: 048
  18. EPEL [Concomitant]
     Dosage: 150 mg, qd
     Route: 048

REACTIONS (1)
  - Erythema multiforme [Recovered/Resolved]
